FAERS Safety Report 8430023-7 (Version None)
Quarter: 2012Q2

REPORT INFORMATION
  Report Type: 
  Country: None (occurrence: None)
  Receive Date: 20120612
  Receipt Date: 20120604
  Transmission Date: 20120825
  Serious: Yes (Life-Threatening, Hospitalization)
  Sender: FDA-Public Use
  Company Number: DE-JNJFOC-20120507087

PATIENT
  Sex: Female

DRUGS (5)
  1. PANTOPRAZOLE [Concomitant]
     Route: 048
  2. IBUPROFEN [Concomitant]
     Route: 048
  3. OPIUM/NALOXONE TAB [Concomitant]
     Route: 048
  4. LYRICA [Concomitant]
     Route: 048
  5. DURAGESIC-100 [Suspect]
     Indication: TUMOUR PAIN
     Route: 062
     Dates: start: 20120430

REACTIONS (2)
  - URINARY TRACT INFECTION [None]
  - DYSPNOEA [None]
